FAERS Safety Report 6818110-8 (Version None)
Quarter: 2010Q3

REPORT INFORMATION
  Report Type: 
  Country: None (occurrence: None)
  Receive Date: 20100706
  Receipt Date: 20100624
  Transmission Date: 20110219
  Serious: Yes (Other)
  Sender: FDA-Public Use
  Company Number: US-PFIZER INC-2010079893

PATIENT
  Sex: Female
  Weight: 58.05 kg

DRUGS (9)
  1. ZOLOFT [Suspect]
     Indication: DEPRESSION
     Dosage: 50 MG, 2X/DAY
     Route: 048
     Dates: start: 19920101, end: 19920101
  2. ZOLOFT [Suspect]
     Indication: MENOPAUSAL SYMPTOMS
  3. CELEXA [Suspect]
     Indication: DEPRESSION
     Dosage: UNK
  4. LIPITOR [Concomitant]
     Indication: BLOOD CHOLESTEROL INCREASED
     Dosage: 10 MG, DAILY
  5. NEURONTIN [Concomitant]
     Dosage: 600 MG, 4X/DAY
  6. WELLBUTRIN XL [Concomitant]
     Dosage: UNK
  7. PROVIGIL [Concomitant]
     Dosage: 100 MG, 2X/DAY
  8. KLONOPIN [Concomitant]
     Dosage: 0.5 MG, 5X/DAY
  9. PERCOCET [Concomitant]
     Dosage: 10/650 MG, EVERY 6 HOURS

REACTIONS (8)
  - DEPRESSED MOOD [None]
  - HYPERHIDROSIS [None]
  - MOVEMENT DISORDER [None]
  - MUSCULOSKELETAL PAIN [None]
  - NAUSEA [None]
  - PAIN [None]
  - PALPITATIONS [None]
  - PRURITUS [None]
